FAERS Safety Report 9225206 (Version 1)
Quarter: 2013Q2

REPORT INFORMATION
  Report Type: Spontaneous
  Country: US (occurrence: None)
  Receive Date: 20130410
  Receipt Date: 20130410
  Transmission Date: 20140414
  Serious: Yes (Life-Threatening, Other)
  Sender: FDA-Public Use
  Company Number: None

PATIENT
  Age: 70 Year
  Sex: Female
  Weight: 88.45 kg

DRUGS (2)
  1. SIMVASTATIN [Suspect]
     Route: 048
  2. SIMVASTATIN [Suspect]
     Route: 048

REACTIONS (7)
  - Muscular weakness [None]
  - Cough [None]
  - Dyspnoea [None]
  - Activities of daily living impaired [None]
  - Musculoskeletal disorder [None]
  - Respiratory muscle weakness [None]
  - Myalgia [None]
